FAERS Safety Report 23431185 (Version 10)
Quarter: 2024Q4

REPORT INFORMATION
  Report Type: Report from Study
  Country: CA (occurrence: CA)
  Receive Date: 20240123
  Receipt Date: 20241231
  Transmission Date: 20250114
  Serious: Yes (Other)
  Sender: NOVARTIS
  Company Number: CA-002147023-NVSC2023CA219680

PATIENT
  Age: 41 Year
  Sex: Female

DRUGS (2)
  1. KESIMPTA [Suspect]
     Active Substance: OFATUMUMAB
     Indication: Relapsing-remitting multiple sclerosis
     Dosage: 20 MG, UNKNOWN
     Route: 058
     Dates: start: 20230620
  2. KESIMPTA [Suspect]
     Active Substance: OFATUMUMAB
     Dosage: 20 MG, UNKNOWN
     Route: 058
     Dates: start: 20230713

REACTIONS (12)
  - Pneumonia [Recovering/Resolving]
  - Bronchitis [Not Recovered/Not Resolved]
  - Fatigue [Unknown]
  - Productive cough [Not Recovered/Not Resolved]
  - Nasopharyngitis [Unknown]
  - Mouth ulceration [Not Recovered/Not Resolved]
  - Sinusitis [Unknown]
  - Secretion discharge [Unknown]
  - Malaise [Unknown]
  - Cough [Unknown]
  - Illness [Unknown]
  - Infection [Unknown]
